FAERS Safety Report 7713256-4 (Version None)
Quarter: 2011Q3

REPORT INFORMATION
  Report Type: 
  Country: None (occurrence: None)
  Receive Date: 20110826
  Receipt Date: 20110811
  Transmission Date: 20111222
  Serious: Yes (Other)
  Sender: FDA-Public Use
  Company Number: SG-BAYER-2011-071797

PATIENT
  Sex: Male

DRUGS (2)
  1. IBUPROFEN [Suspect]
  2. ASPIRIN [Suspect]

REACTIONS (1)
  - ANGIOEDEMA [None]
